FAERS Safety Report 8121969 (Version 2)
Quarter: 2023Q1

REPORT INFORMATION
  Report Type: Spontaneous
  Country: FR (occurrence: FR)
  Receive Date: 20110906
  Receipt Date: 20230223
  Transmission Date: 20230418
  Serious: Yes (Other)
  Sender: FDA-Public Use
  Company Number: PHHY2011FR78096

PATIENT
  Age: 31 Year

DRUGS (20)
  1. METHYLPREDNISOLONE [Suspect]
     Active Substance: METHYLPREDNISOLONE
     Indication: Hodgkin^s disease
     Dosage: UNK UNK, CYCLIC (ESHAP CHEMOTHERAPY)
     Route: 065
  2. ETOPOSIDE [Suspect]
     Active Substance: ETOPOSIDE
     Indication: Hodgkin^s disease
     Dosage: UNK UNK, CYCLIC (3 CYCLE, ESHAP CHEMOTHERAPY)
     Route: 065
  3. ETOPOSIDE [Suspect]
     Active Substance: ETOPOSIDE
     Dosage: UNK UNK, CYCLIC (1 CYCLE)
     Route: 065
  4. IFOSFAMIDE [Suspect]
     Active Substance: IFOSFAMIDE
     Indication: Hodgkin^s disease
     Dosage: UNK UNK, CYCLIC (1 CYCLE)
     Route: 065
  5. VINCRISTINE [Suspect]
     Active Substance: VINCRISTINE
     Indication: Hodgkin^s disease
     Dosage: UNK UNK, CYCLIC (8 CYCLES)
     Route: 065
  6. PREDNISONE [Suspect]
     Active Substance: PREDNISONE
     Indication: Hodgkin^s disease
     Dosage: UNK UNK, CYCLIC (8 WEEKS)
     Route: 065
  7. ADRIAMYCIN [Suspect]
     Active Substance: DOXORUBICIN HYDROCHLORIDE
     Indication: Hodgkin^s disease
     Dosage: UNK UNK, CYCLIC (6 CYCLES)
     Route: 065
  8. ADRIAMYCIN [Suspect]
     Active Substance: DOXORUBICIN HYDROCHLORIDE
     Dosage: UNK UNK, CYCLIC (3 CYCLES)
     Route: 065
  9. BLEOMYCIN [Suspect]
     Active Substance: BLEOMYCIN SULFATE
     Indication: Hodgkin^s disease
     Dosage: UNK UNK, CYCLIC (6 CYCLES)
     Route: 065
  10. NAVELBINE [Suspect]
     Active Substance: VINORELBINE TARTRATE
     Indication: Hodgkin^s disease
     Dosage: ONE CYCLE
     Route: 065
  11. VINDESINE [Suspect]
     Active Substance: VINDESINE
     Indication: Hodgkin^s disease
     Dosage: UNK UNK, CYCLIC (6 CYCLES)
     Route: 065
  12. VINDESINE [Suspect]
     Active Substance: VINDESINE
     Dosage: UNK UNK, CYCLIC (3 CYCLES)
     Route: 065
  13. DACARBAZINE [Suspect]
     Active Substance: DACARBAZINE
     Indication: Hodgkin^s disease
     Dosage: UNK UNK, CYCLIC (6 CYCLES)
     Route: 065
  14. CYTARABINE [Suspect]
     Active Substance: CYTARABINE
     Indication: Hodgkin^s disease
     Dosage: UNK UNK, CYCLIC (1 CYCLE, 3 WEEKS)
     Route: 065
  15. MITOGUAZONE [Suspect]
     Active Substance: MITOGUAZONE
     Indication: Hodgkin^s disease
     Dosage: UNK UNK, CYCLIC (1 CYCLE)
     Route: 065
  16. PROCARBAZINE [Suspect]
     Active Substance: PROCARBAZINE
     Indication: Hodgkin^s disease
     Dosage: UNK
     Route: 065
  17. MELPHALAN [Suspect]
     Active Substance: MELPHALAN
     Indication: Hodgkin^s disease
     Dosage: UNK UNK, CYCLIC (2 CYCLES)
     Route: 065
  18. MECHLORETHAMINE [Suspect]
     Active Substance: MECHLORETHAMINE
     Indication: Hodgkin^s disease
     Dosage: UNK UNK, CYCLIC (8 CYCLES)
     Route: 065
  19. REVLIMID [Suspect]
     Active Substance: LENALIDOMIDE
     Indication: Hodgkin^s disease
     Dosage: 15 MG, CYCLIC (2 CYCLES)
     Route: 065
  20. CISPLATIN [Suspect]
     Active Substance: CISPLATIN
     Indication: Hodgkin^s disease
     Dosage: UNK UNK, Q3W (ESHAP CHEMOTHERAPY)
     Route: 065

REACTIONS (4)
  - Hodgkin^s disease recurrent [Unknown]
  - Anaemia [Recovered/Resolved]
  - Neutropenia [Recovered/Resolved]
  - Thrombocytopenia [Recovered/Resolved]
